FAERS Safety Report 5117704-8 (Version None)
Quarter: 2006Q3

REPORT INFORMATION
  Report Type: 
  Country: None (occurrence: None)
  Receive Date: 20060929
  Receipt Date: 20060802
  Transmission Date: 20061208
  Serious: Yes (Hospitalization)
  Sender: FDA-Public Use
  Company Number: US-BRISTOL-MYERS SQUIBB COMPANY-13464086

PATIENT
  Age: 89 Year
  Sex: Female
  Weight: 74 kg

DRUGS (10)
  1. SPRYCEL [Suspect]
     Indication: CHRONIC MYELOID LEUKAEMIA
     Route: 048
     Dates: start: 20060719
  2. ALLOPURINOL [Concomitant]
     Route: 048
     Dates: start: 20060620
  3. ATACAND [Concomitant]
     Route: 048
     Dates: start: 20060620
  4. GEMFIBROZIL [Concomitant]
     Route: 048
     Dates: start: 20060620
  5. LANTUS [Concomitant]
     Route: 058
     Dates: start: 20060620
  6. LEVOXYL [Concomitant]
     Route: 048
     Dates: start: 20060620
  7. METOPROLOL TARTRATE [Concomitant]
     Route: 048
     Dates: start: 20060620
  8. SUCRALFATE [Concomitant]
     Route: 048
     Dates: start: 20060620
  9. DARBEPOETIN ALFA [Concomitant]
     Dates: start: 20050615, end: 20060809
  10. EPOETIN ALFA [Concomitant]
     Route: 058
     Dates: start: 20060705, end: 20060719

REACTIONS (1)
  - PNEUMONITIS [None]
